FAERS Safety Report 19635108 (Version 1)
Quarter: 2021Q3

REPORT INFORMATION
  Report Type: Spontaneous
  Country: US (occurrence: US)
  Receive Date: 20210730
  Receipt Date: 20210730
  Transmission Date: 20211014
  Serious: No
  Sender: FDA-Public Use
  Company Number: None

PATIENT
  Age: 47 Year
  Sex: Female

DRUGS (1)
  1. HUMIRA [Suspect]
     Active Substance: ADALIMUMAB
     Indication: RHEUMATOID ARTHRITIS
     Dosage: ?          OTHER FREQUENCY:EVERY 14 DAYS;?
     Route: 058
     Dates: start: 202012, end: 20210506

REACTIONS (9)
  - Muscle spasms [None]
  - Tremor [None]
  - Tachycardia [None]
  - Swelling face [None]
  - Therapy interrupted [None]
  - Flushing [None]
  - Fatigue [None]
  - Oropharyngeal pain [None]
  - Asthenia [None]

NARRATIVE: CASE EVENT DATE: 20210326
